FAERS Safety Report 5186495-7 (Version None)
Quarter: 2006Q4

REPORT INFORMATION
  Report Type: 
  Country: None (occurrence: None)
  Receive Date: 20061213
  Receipt Date: 20061127
  Transmission Date: 20070319
  Serious: Yes (Hospitalization)
  Sender: FDA-Public Use
  Company Number: MEDI-0005172

PATIENT
  Age: 3 Month
  Sex: Male
  Weight: 3.466 kg

DRUGS (2)
  1. SYNAGIS [Suspect]
     Indication: PROPHYLAXIS
     Dosage: 52 MG, SUBCUTANEOUS
     Route: 058
     Dates: start: 20061107, end: 20061107
  2. DKTP +HIP (DIPHTHERIA TOXOID, TETANUS TOXOID, POLIOMYELITIS VACCINE IN [Concomitant]

REACTIONS (1)
  - APNOEA [None]
